FAERS Safety Report 23592714 (Version 1)
Quarter: 2024Q1

REPORT INFORMATION
  Report Type: Spontaneous
  Country: US (occurrence: None)
  Receive Date: 20240303
  Receipt Date: 20240303
  Transmission Date: 20240410
  Serious: Yes (Disabling)
  Sender: FDA-Public Use
  Company Number: None

PATIENT
  Age: 62 Year
  Sex: Female
  Weight: 47.25 kg

DRUGS (1)
  1. REPATHA [Suspect]
     Active Substance: EVOLOCUMAB
     Indication: Immune-mediated myositis
     Dosage: OTHER QUANTITY : 1 INJECTION(S);?OTHER FREQUENCY : EVERY 2 WEEKS;?
     Route: 061
     Dates: start: 20231207, end: 20240210

REACTIONS (5)
  - Pain in extremity [None]
  - Arthralgia [None]
  - Myalgia [None]
  - Feeling abnormal [None]
  - Pain in extremity [None]

NARRATIVE: CASE EVENT DATE: 20240210
